FAERS Safety Report 9643666 (Version 1)
Quarter: 2013Q4

REPORT INFORMATION
  Report Type: Spontaneous
  Country: CZ (occurrence: CZ)
  Receive Date: 20131024
  Receipt Date: 20131024
  Transmission Date: 20140711
  Serious: Yes (Hospitalization, Other)
  Sender: FDA-Public Use
  Company Number: CZ-BAXTER-2013BAX040990

PATIENT
  Age: 42 Year
  Sex: Male

DRUGS (5)
  1. ENDOXAN 1G [Suspect]
     Indication: B-CELL LYMPHOMA
     Dates: start: 200707
  2. RITUXIMAB [Suspect]
     Indication: B-CELL LYMPHOMA
     Dates: start: 200707
  3. DOXORUBICIN [Suspect]
     Indication: B-CELL LYMPHOMA
     Dates: start: 200707
  4. VINCRISTINE [Suspect]
     Indication: B-CELL LYMPHOMA
     Dates: start: 200707
  5. PREDNISOLONE [Suspect]
     Indication: B-CELL LYMPHOMA
     Dates: start: 200707

REACTIONS (2)
  - Hepatitis B [Recovered/Resolved]
  - Acute hepatic failure [Recovered/Resolved]
